FAERS Safety Report 22379411 (Version 4)
Quarter: 2023Q4

REPORT INFORMATION
  Report Type: Spontaneous
  Country: US (occurrence: US)
  Receive Date: 20230529
  Receipt Date: 20231227
  Transmission Date: 20240110
  Serious: No
  Sender: FDA-Public Use
  Company Number: US-BRISTOL-MYERS SQUIBB COMPANY-2023-075205

PATIENT
  Age: 69 Year
  Sex: Female
  Weight: 93.89 kg

DRUGS (2)
  1. POMALYST [Suspect]
     Active Substance: POMALIDOMIDE
     Indication: Plasma cell myeloma in remission
     Dosage: FREQ-DAILY FOR 21DAYS
     Route: 048
     Dates: start: 20230501
  2. POMALYST [Suspect]
     Active Substance: POMALIDOMIDE
     Dosage: FREQ-3WKSON,1OFF
     Route: 048
     Dates: start: 20230501

REACTIONS (15)
  - Diarrhoea [Unknown]
  - Fatigue [Unknown]
  - Disturbance in attention [Unknown]
  - Erythema [Unknown]
  - Nervousness [Unknown]
  - Dyspnoea [Unknown]
  - Lymphadenopathy [Unknown]
  - Oropharyngeal pain [Unknown]
  - Cough [Unknown]
  - Tremor [Unknown]
  - Myalgia [Unknown]
  - Arthralgia [Unknown]
  - Product supply issue [Unknown]
  - Off label use [Unknown]
  - Dry skin [Not Recovered/Not Resolved]
